FAERS Safety Report 4441055-8 (Version None)
Quarter: 2004Q3

REPORT INFORMATION
  Report Type: 
  Country: None (occurrence: None)
  Receive Date: 20040728
  Receipt Date: 20040331
  Transmission Date: 20050211
  Serious: No
  Sender: FDA-Public Use
  Company Number: USA040463802

PATIENT
  Age: 10 Year
  Sex: Male
  Weight: 36 kg

DRUGS (4)
  1. STRATTERA [Suspect]
     Dosage: 40 MG IN THE MORNING
     Dates: start: 20040201
  2. ZOLOFT [Concomitant]
  3. ABILIFY [Concomitant]
  4. CLONIDINE HCL [Concomitant]

REACTIONS (1)
  - TIC [None]
